FAERS Safety Report 4589703-6 (Version None)
Quarter: 2005Q1

REPORT INFORMATION
  Report Type: 
  Country: None (occurrence: None)
  Receive Date: 20050217
  Receipt Date: 20050202
  Transmission Date: 20050727
  Serious: Yes (Hospitalization, Disabling)
  Sender: FDA-Public Use
  Company Number: 2005-00422

PATIENT
  Age: 75 Year
  Sex: Male

DRUGS (10)
  1. QUININE SULFATE [Suspect]
     Dosage: 1 TABLET, DAILY, ORAL
     Route: 048
     Dates: start: 20041116, end: 20041122
  2. INTERFERON ALFA-2B (INTERFERON ALFA-2B) INJECTION [Suspect]
     Indication: CHRONIC MYELOID LEUKAEMIA
     Dosage: 3 MIU, 2/WEEK, SUBCUTANEOUS
     Route: 058
     Dates: start: 19900101
  3. COVERSYL (PERINDOPRIL) [Concomitant]
  4. AMLODIPINE BESYLATE [Concomitant]
  5. ASPEGIC 1000 [Concomitant]
  6. VASTAREL (TRIMETAZIDINE HYDROCHLORIDE) [Concomitant]
  7. CORDIPATCH (GLYCERYL TRINITRATE) [Concomitant]
  8. TRIVASTAL (PIRIBEDIL) [Concomitant]
  9. SINEMET [Concomitant]
  10. TANAKAN (GINKGO BILOBA EXTRACT) [Concomitant]

REACTIONS (7)
  - CONDITION AGGRAVATED [None]
  - DIZZINESS [None]
  - MALAISE [None]
  - NEUROPATHY [None]
  - NONSPECIFIC REACTION [None]
  - POLYNEUROPATHY [None]
  - TINNITUS [None]
